FAERS Safety Report 4362540-3 (Version None)
Quarter: 2004Q2

REPORT INFORMATION
  Report Type: 
  Country: None (occurrence: None)
  Receive Date: 20040517
  Receipt Date: 20040315
  Transmission Date: 20050107
  Serious: Yes (Hospitalization)
  Sender: FDA-Public Use
  Company Number: S04-USA-01541-01

PATIENT
  Age: 81 Year
  Sex: Male

DRUGS (5)
  1. NAMENDA [Suspect]
     Indication: DEMENTIA ALZHEIMER'S TYPE
     Dosage: 5 MG QD PO
     Route: 048
     Dates: start: 20040309, end: 20040315
  2. ARICEPT [Concomitant]
  3. PLAVIX [Concomitant]
  4. ASPIRIN [Concomitant]
  5. SYNTHROID [Concomitant]

REACTIONS (1)
  - MYOCARDIAL INFARCTION [None]
